FAERS Safety Report 7689991-3 (Version None)
Quarter: 2011Q3

REPORT INFORMATION
  Report Type: 
  Country: None (occurrence: None)
  Receive Date: 20110818
  Receipt Date: 20110810
  Transmission Date: 20111222
  Serious: Yes (Hospitalization)
  Sender: FDA-Public Use
  Company Number: US-BIOGENIDEC-2011BI030851

PATIENT
  Sex: Female

DRUGS (3)
  1. TYSABRI [Suspect]
     Indication: MULTIPLE SCLEROSIS
     Route: 042
     Dates: start: 20071129, end: 20080717
  2. TYSABRI [Suspect]
     Route: 042
     Dates: start: 20081103, end: 20101208
  3. TYSABRI [Suspect]
     Route: 042
     Dates: start: 20110502

REACTIONS (2)
  - MULTIPLE SCLEROSIS RELAPSE [None]
  - CYSTITIS [None]
